FAERS Safety Report 9003722 (Version 1)
Quarter: 2013Q1

REPORT INFORMATION
  Report Type: Spontaneous
  Country: US (occurrence: US)
  Receive Date: 20130108
  Receipt Date: 20130108
  Transmission Date: 20140127
  Serious: No
  Sender: FDA-Public Use
  Company Number: US-GLAXOSMITHKLINE-A0967179A

PATIENT
  Age: 74 Year
  Sex: Female

DRUGS (3)
  1. LOVAZA [Suspect]
     Indication: BLOOD TRIGLYCERIDES INCREASED
     Dosage: 2CAP TWICE PER DAY
     Route: 048
     Dates: start: 201111
  2. OMEPRAZOLE [Concomitant]
  3. LIPITOR [Concomitant]

REACTIONS (7)
  - Thermal burn [Not Recovered/Not Resolved]
  - Oral discomfort [Unknown]
  - Glossodynia [Unknown]
  - Oral pain [Unknown]
  - Eructation [Unknown]
  - Urinary tract disorder [Unknown]
  - Therapeutic response unexpected [Unknown]
